FAERS Safety Report 8852675 (Version 2)
Quarter: 2013Q1

REPORT INFORMATION
  Report Type: Spontaneous
  Country: AT (occurrence: AT)
  Receive Date: 20121022
  Receipt Date: 20130314
  Transmission Date: 20140127
  Serious: Yes (Other)
  Sender: FDA-Public Use
  Company Number: AT-PFIZER INC-2012257853

PATIENT
  Age: 51 Year
  Sex: Male

DRUGS (4)
  1. FLUOROURACIL [Suspect]
     Indication: RECTAL CANCER
     Dosage: 400 MG/M2, UNK
     Route: 040
  2. FLUOROURACIL [Suspect]
     Dosage: 2400 MG/M2, UNK
     Route: 042
  3. OXALIPLATIN [Concomitant]
     Indication: RECTAL CANCER
     Dosage: 85 MG/M2, UNKNOWN
  4. LEUCOVORIN [Concomitant]
     Indication: RECTAL CANCER
     Dosage: 400 MG/M2, UNKNOWN

REACTIONS (2)
  - Cardiac failure acute [Recovered/Resolved]
  - Coronary artery disease [Recovered/Resolved]
